FAERS Safety Report 8343419-9 (Version None)
Quarter: 2012Q2

REPORT INFORMATION
  Report Type: 
  Country: None (occurrence: None)
  Receive Date: 20120508
  Receipt Date: 20100602
  Transmission Date: 20120825
  Serious: No
  Sender: FDA-Public Use
  Company Number: US-TEVA-2010002452

PATIENT
  Age: 68 Year
  Sex: Female
  Weight: 50.394 kg

DRUGS (11)
  1. TREANDA [Suspect]
     Indication: NON-HODGKIN'S LYMPHOMA
     Route: 042
     Dates: end: 20100202
  2. ATIVAN [Concomitant]
  3. RITUXAN [Concomitant]
  4. CALCIUM [Concomitant]
  5. FISH OIL [Concomitant]
  6. ZOFRAN [Concomitant]
  7. VITAMIN D [Concomitant]
  8. MEGACE [Concomitant]
  9. ACYCLOVIR [Concomitant]
  10. MULTI-VITAMIN [Concomitant]
  11. EMEND [Concomitant]

REACTIONS (10)
  - VIRAL INFECTION [None]
  - STOMATITIS [None]
  - NAUSEA [None]
  - MALAISE [None]
  - GRANULOCYTE COUNT DECREASED [None]
  - VISION BLURRED [None]
  - HAEMOGLOBIN DECREASED [None]
  - LIP ULCERATION [None]
  - CONSTIPATION [None]
  - FATIGUE [None]
